FAERS Safety Report 13913273 (Version 1)
Quarter: 2017Q3

REPORT INFORMATION
  Report Type: Spontaneous
  Country: US (occurrence: US)
  Receive Date: 20170828
  Receipt Date: 20170828
  Transmission Date: 20171127
  Serious: No
  Sender: FDA-Public Use
  Company Number: US-ROCHE-1122483

PATIENT
  Sex: Female
  Weight: 79.7 kg

DRUGS (4)
  1. NUTROPIN AQ [Suspect]
     Active Substance: SOMATROPIN
     Indication: GROWTH HORMONE DEFICIENCY
     Route: 050
     Dates: start: 19990630, end: 19990930
  2. NUTROPIN [Suspect]
     Active Substance: SOMATROPIN
     Route: 050
     Dates: start: 19990814
  3. NUTROPIN [Suspect]
     Active Substance: SOMATROPIN
     Indication: DWARFISM
     Route: 050
     Dates: start: 19990630, end: 19990930
  4. NUTROPIN AQ [Suspect]
     Active Substance: SOMATROPIN
     Route: 050
     Dates: start: 19990814

REACTIONS (2)
  - Depression [Recovering/Resolving]
  - Anxiety [Unknown]
